FAERS Safety Report 17457551 (Version 1)
Quarter: 2020Q1

REPORT INFORMATION
  Report Type: Spontaneous
  Country: US (occurrence: US)
  Receive Date: 20200225
  Receipt Date: 20200225
  Transmission Date: 20200409
  Serious: No
  Sender: FDA-Public Use
  Company Number: US-BEH-2020113039

PATIENT
  Age: 78 Year
  Sex: Male

DRUGS (1)
  1. HIZENTRA [Suspect]
     Active Substance: HUMAN IMMUNOGLOBULIN G
     Indication: CHRONIC INFLAMMATORY DEMYELINATING POLYRADICULONEUROPATHY
     Dosage: 30 GRAM, QW
     Route: 058
     Dates: start: 202001

REACTIONS (6)
  - Injection site reaction [Unknown]
  - Injection site pain [Unknown]
  - Injection site mass [Unknown]
  - Injection site erythema [Unknown]
  - Injection site induration [Unknown]
  - Injection site bruising [Unknown]

NARRATIVE: CASE EVENT DATE: 202002
